FAERS Safety Report 13647141 (Version 1)
Quarter: 2017Q2

REPORT INFORMATION
  Report Type: Spontaneous
  Country: US (occurrence: US)
  Receive Date: 20170613
  Receipt Date: 20170613
  Transmission Date: 20170830
  Serious: No
  Sender: FDA-Public Use
  Company Number: US-TRIS PHARMA, INC-2017TRISPO00064

PATIENT

DRUGS (1)
  1. DEXTROMETHORPHAN POLISTIREX [Suspect]
     Active Substance: DEXTROMETHORPHAN HYDROBROMIDE
     Indication: PRODUCT USED FOR UNKNOWN INDICATION
     Dosage: 5 OUNCES WITHIN 8 HOURS
     Route: 048
     Dates: start: 20170424, end: 20170424

REACTIONS (2)
  - Overdose [Unknown]
  - Dizziness [Unknown]

NARRATIVE: CASE EVENT DATE: 20170424
